FAERS Safety Report 5093581-9 (Version None)
Quarter: 2006Q3

REPORT INFORMATION
  Report Type: 
  Country: None (occurrence: None)
  Receive Date: 20060829
  Receipt Date: 20060812
  Transmission Date: 20061208
  Serious: Yes (Hospitalization)
  Sender: FDA-Public Use
  Company Number: US200606006231

PATIENT
  Age: 70 Year
  Sex: Female
  Weight: 66.2 kg

DRUGS (6)
  1. FORTEO [Suspect]
     Indication: OSTEOPOROSIS
     Dosage: 20 UG
     Dates: start: 20051003
  2. FORTEO [Concomitant]
  3. AVAPRO [Concomitant]
  4. TENORMIN [Concomitant]
  5. ZETIA [Concomitant]
  6. CALTRATE + D (CALCIUM CARBONATE, COLECALECIFEROL) [Concomitant]

REACTIONS (2)
  - GLOBAL AMNESIA [None]
  - PHARMACEUTICAL PRODUCT COMPLAINT [None]
